FAERS Safety Report 24049077 (Version 2)
Quarter: 2024Q3

REPORT INFORMATION
  Report Type: Spontaneous
  Country: US (occurrence: US)
  Receive Date: 20240704
  Receipt Date: 20240717
  Transmission Date: 20241017
  Serious: Yes (Other)
  Sender: TEVA
  Company Number: US-TEVA-VS-3213987

PATIENT
  Age: 62 Year
  Sex: Male

DRUGS (5)
  1. RASAGILINE [Suspect]
     Active Substance: RASAGILINE\RASAGILINE MESYLATE
     Indication: Parkinsonism
     Route: 065
  2. AMANTADINE [Suspect]
     Active Substance: AMANTADINE
     Indication: Parkinsonism
     Route: 065
  3. PRAMIPEXOLE [Suspect]
     Active Substance: PRAMIPEXOLE\PRAMIPEXOLE DIHYDROCHLORIDE
     Indication: Parkinsonism
     Route: 065
  4. BOTULINUM TOXIN NOS [Suspect]
     Active Substance: BOTULINUM TOXIN NOS
     Indication: Parkinsonism
     Route: 065
  5. CARBIDOPA\LEVODOPA [Suspect]
     Active Substance: CARBIDOPA\LEVODOPA
     Indication: Parkinsonism
     Route: 065

REACTIONS (2)
  - Dystonia [Unknown]
  - Drug ineffective [Unknown]
